FAERS Safety Report 10172849 (Version 1)
Quarter: 2014Q2

REPORT INFORMATION
  Report Type: Spontaneous
  Country: JP (occurrence: None)
  Receive Date: 20140513
  Receipt Date: 20140513
  Transmission Date: 20141212
  Serious: Yes (Hospitalization)
  Sender: FDA-Public Use
  Company Number: FK201401686

PATIENT
  Age: 45 Year
  Sex: Female

DRUGS (4)
  1. FLUOROURACIL [Suspect]
     Indication: BREAST CANCER STAGE II
     Dosage: (NOT OTHERWISE SPECIFIED)
     Route: 042
  2. CYCLOPHOSPHAMIDE [Suspect]
     Indication: BREAST CANCER STAGE II
     Dosage: (NOT OTHERWISE SPECIFIED)
     Route: 042
  3. EPIRUBICIN [Suspect]
     Indication: BREAST CANCER STAGE II
     Dosage: (NOT OTHERWISE SPECIFIED)
     Route: 042
  4. PACLITAXEL [Suspect]
     Indication: BREAST CANCER STAGE II
     Dosage: FOR 12 WEEKS
     Route: 042

REACTIONS (1)
  - Interstitial lung disease [None]
